FAERS Safety Report 5469295-X (Version None)
Quarter: 2007Q3

REPORT INFORMATION
  Report Type: 
  Country: None (occurrence: None)
  Receive Date: 20070927
  Receipt Date: 20070914
  Transmission Date: 20080115
  Serious: Yes (Hospitalization, Other)
  Sender: FDA-Public Use
  Company Number: JP-NOVOPROD-267687

PATIENT
  Age: 72 Year
  Sex: Female

DRUGS (1)
  1. NOVORAPID CHU FLEXPEN [Suspect]
     Indication: DIABETES MELLITUS
     Route: 058

REACTIONS (2)
  - CHOREA [None]
  - HYPERGLYCAEMIA [None]
